FAERS Safety Report 14406366 (Version 1)
Quarter: 2018Q1

REPORT INFORMATION
  Report Type: Spontaneous
  Country: US (occurrence: US)
  Receive Date: 20180118
  Receipt Date: 20180118
  Transmission Date: 20180509
  Serious: No
  Sender: FDA-Public Use
  Company Number: None

PATIENT
  Age: 78 Year
  Sex: Female
  Weight: 90.72 kg

DRUGS (7)
  1. PILOCARPINE. [Concomitant]
     Active Substance: PILOCARPINE
  2. SIMBRINZA [Concomitant]
     Active Substance: BRIMONIDINE TARTRATE\BRINZOLAMIDE
  3. VITAMIN D [Concomitant]
     Active Substance: CHOLECALCIFEROL
  4. PROLIA [Suspect]
     Active Substance: DENOSUMAB
     Indication: BONE LOSS
     Dosage: 1 INJECTION EVERY 6 HOURS
     Dates: start: 20150701, end: 20170701
  5. LUMIGAN [Concomitant]
     Active Substance: BIMATOPROST
  6. LIPITOR [Concomitant]
     Active Substance: ATORVASTATIN CALCIUM
  7. CALCIUM [Concomitant]
     Active Substance: CALCIUM

REACTIONS (2)
  - Deafness [None]
  - Herpes zoster [None]

NARRATIVE: CASE EVENT DATE: 201703
